FAERS Safety Report 5781972-X (Version None)
Quarter: 2008Q2

REPORT INFORMATION
  Report Type: 
  Country: None (occurrence: None)
  Receive Date: 20080623
  Receipt Date: 20080102
  Transmission Date: 20081010
  Serious: No
  Sender: FDA-Public Use
  Company Number: US-ASTRAZENECA-2008UW00160

PATIENT
  Age: 83 Year
  Sex: Male
  Weight: 77.1 kg

DRUGS (3)
  1. RHINOCORT [Suspect]
     Indication: NASAL CONGESTION
     Dosage: 1 SPRAY PER NOSTRIL ONCE DAILY
     Route: 045
  2. ACTONEL [Concomitant]
  3. ASPIRIN [Concomitant]
     Route: 048

REACTIONS (2)
  - EPISTAXIS [None]
  - NASAL CONGESTION [None]
